FAERS Safety Report 8403140-5 (Version None)
Quarter: 2012Q2

REPORT INFORMATION
  Report Type: 
  Country: None (occurrence: None)
  Receive Date: 20120601
  Receipt Date: 20120521
  Transmission Date: 20120825
  Serious: Yes (Hospitalization)
  Sender: FDA-Public Use
  Company Number: BR-ELI_LILLY_AND_COMPANY-BR201205010725

PATIENT
  Age: 67 Year
  Sex: Male

DRUGS (1)
  1. EFFIENT [Suspect]
     Dosage: UNK UNK, UNKNOWN
     Route: 048
     Dates: start: 20120201

REACTIONS (2)
  - UPPER GASTROINTESTINAL HAEMORRHAGE [None]
  - APPENDICITIS [None]
